FAERS Safety Report 6540265-3 (Version None)
Quarter: 2010Q1

REPORT INFORMATION
  Report Type: 
  Country: None (occurrence: None)
  Receive Date: 20100115
  Receipt Date: 20090318
  Transmission Date: 20100710
  Serious: No
  Sender: FDA-Public Use
  Company Number: US-ABBOTT-08P-163-0474696-00

PATIENT
  Sex: Female

DRUGS (6)
  1. ADVICOR [Suspect]
     Indication: BLOOD CHOLESTEROL INCREASED
     Dosage: 500/20 MG DAILY
     Route: 048
     Dates: start: 20050101, end: 20090315
  2. PROCARDIA [Suspect]
     Indication: HEART RATE DECREASED
     Route: 048
     Dates: start: 20080401
  3. ACTONEL [Concomitant]
     Indication: DRUG USE FOR UNKNOWN INDICATION
     Route: 048
     Dates: start: 20080401
  4. ALPRAZOLAM [Concomitant]
     Indication: ANXIETY
     Route: 048
  5. DIOVAN [Concomitant]
     Indication: DRUG USE FOR UNKNOWN INDICATION
     Route: 048
     Dates: start: 20080101
  6. ASPIRIN [Concomitant]
     Indication: DRUG USE FOR UNKNOWN INDICATION
     Route: 048

REACTIONS (16)
  - ABDOMINAL PAIN UPPER [None]
  - ARTHRALGIA [None]
  - BLOOD CHOLESTEROL INCREASED [None]
  - CHILLS [None]
  - DIZZINESS [None]
  - DYSSTASIA [None]
  - FEELING HOT [None]
  - FLUSHING [None]
  - FORMICATION [None]
  - GASTROOESOPHAGEAL REFLUX DISEASE [None]
  - HEART RATE DECREASED [None]
  - PAIN IN EXTREMITY [None]
  - PARAESTHESIA ORAL [None]
  - PRURITUS [None]
  - RENAL DISORDER [None]
  - SWELLING [None]
